FAERS Safety Report 25160342 (Version 1)
Quarter: 2025Q2

REPORT INFORMATION
  Report Type: Spontaneous
  Country: US (occurrence: US)
  Receive Date: 20250404
  Receipt Date: 20250404
  Transmission Date: 20250717
  Serious: Yes (Death, Other)
  Sender: APOTEX
  Company Number: US-APOTEX-2025AP004321

PATIENT
  Sex: Male

DRUGS (1)
  1. PAXIL [Suspect]
     Active Substance: PAROXETINE HYDROCHLORIDE
     Indication: Product used for unknown indication
     Route: 065

REACTIONS (2)
  - Completed suicide [Fatal]
  - Homicide [Fatal]
